FAERS Safety Report 23890159 (Version 2)
Quarter: 2024Q2

REPORT INFORMATION
  Report Type: Spontaneous
  Country: US (occurrence: US)
  Receive Date: 20240523
  Receipt Date: 20240608
  Transmission Date: 20240716
  Serious: No
  Sender: FDA-Public Use
  Company Number: US-SANOFI-02057120

PATIENT
  Age: 25 Year
  Sex: Female

DRUGS (1)
  1. DUPIXENT [Suspect]
     Active Substance: DUPILUMAB
     Indication: Asthma
     Dosage: 200 MG, QOW
     Route: 058
     Dates: start: 202005

REACTIONS (3)
  - Musculoskeletal discomfort [Unknown]
  - Arthralgia [Not Recovered/Not Resolved]
  - Pain in extremity [Not Recovered/Not Resolved]

NARRATIVE: CASE EVENT DATE: 20200501
